FAERS Safety Report 6169763-1 (Version None)
Quarter: 2009Q2

REPORT INFORMATION
  Report Type: 
  Country: None (occurrence: None)
  Receive Date: 20090428
  Receipt Date: 20090413
  Transmission Date: 20091009
  Serious: Yes (Death)
  Sender: FDA-Public Use
  Company Number: US-ROCHE-626055

PATIENT
  Sex: Male

DRUGS (1)
  1. CELLCEPT [Suspect]
     Indication: DRUG USE FOR UNKNOWN INDICATION
     Route: 065
     Dates: start: 20090301

REACTIONS (1)
  - RESPIRATORY FAILURE [None]
